FAERS Safety Report 20136340 (Version 1)
Quarter: 2021Q4

REPORT INFORMATION
  Report Type: Spontaneous
  Country: FI (occurrence: FI)
  Receive Date: 20211201
  Receipt Date: 20211201
  Transmission Date: 20220303
  Serious: Yes (Hospitalization)
  Sender: FDA-Public Use
  Company Number: None

PATIENT
  Age: 39 Year
  Sex: Female

DRUGS (1)
  1. CYTOTEC [Suspect]
     Active Substance: MISOPROSTOL
     Indication: Abortion induced
     Dosage: 800 UG X1
     Route: 067
     Dates: start: 20211103, end: 20211103

REACTIONS (6)
  - Off label use [Recovering/Resolving]
  - Pain [Recovering/Resolving]
  - Arteriospasm coronary [Recovering/Resolving]
  - Electrocardiogram ST segment elevation [Recovering/Resolving]
  - Hypoaesthesia [Recovering/Resolving]
  - Chest pain [Recovering/Resolving]

NARRATIVE: CASE EVENT DATE: 20211103
